FAERS Safety Report 20617140 (Version 7)
Quarter: 2022Q4

REPORT INFORMATION
  Report Type: Report from Study
  Country: US (occurrence: US)
  Receive Date: 20220321
  Receipt Date: 20221121
  Transmission Date: 20230113
  Serious: Yes (Other)
  Sender: FDA-Public Use
  Company Number: US-ABBVIE-22K-163-4321850-00

PATIENT
  Age: 84 Year
  Sex: Female

DRUGS (6)
  1. HUMIRA [Suspect]
     Active Substance: ADALIMUMAB
     Indication: Colitis ulcerative
     Dosage: CITRATE FREE 40MG
     Route: 058
  2. HUMIRA [Suspect]
     Active Substance: ADALIMUMAB
     Dosage: 40MG
     Route: 058
  3. REMICADE [Suspect]
     Active Substance: INFLIXIMAB
     Indication: Product used for unknown indication
     Route: 065
     Dates: start: 2020
  4. PFIZER-BIONTECH COVID-19 VACCINE [Concomitant]
     Active Substance: TOZINAMERAN
     Indication: COVID-19 immunisation
     Dosage: FREQUENCY ONE INTO ONCE, FIRST DOSWE
     Route: 030
     Dates: start: 20210312, end: 20210312
  5. PFIZER-BIONTECH COVID-19 VACCINE [Concomitant]
     Active Substance: TOZINAMERAN
     Indication: COVID-19 immunisation
     Dosage: FREQUENCY ONE INTO ONCE, SECOND DOSE
     Route: 030
     Dates: start: 20210412, end: 20210412
  6. PFIZER-BIONTECH COVID-19 VACCINE [Concomitant]
     Active Substance: TOZINAMERAN
     Indication: COVID-19 immunisation
     Dosage: FREQUENCY ONE INTO ONCE, THIRD DOSE
     Route: 030
     Dates: start: 20220605, end: 20220605

REACTIONS (24)
  - Osteoporosis [Recovering/Resolving]
  - Back pain [Recovering/Resolving]
  - Phlebitis [Recovering/Resolving]
  - Dairy intolerance [Unknown]
  - Vision blurred [Unknown]
  - Stress [Unknown]
  - Dyspepsia [Not Recovered/Not Resolved]
  - Rash [Unknown]
  - Cervical vertebral fracture [Recovering/Resolving]
  - Drug specific antibody present [Unknown]
  - Irritable bowel syndrome [Unknown]
  - Diverticulitis [Unknown]
  - Surgery [Unknown]
  - Scoliosis [Recovering/Resolving]
  - Gastric disorder [Unknown]
  - Epigastric discomfort [Unknown]
  - Contusion [Unknown]
  - Road traffic accident [Unknown]
  - Blister [Unknown]
  - Colitis ulcerative [Recovering/Resolving]
  - Wound infection staphylococcal [Recovering/Resolving]
  - Back injury [Unknown]
  - Back disorder [Recovering/Resolving]
  - Neck injury [Unknown]

NARRATIVE: CASE EVENT DATE: 20211001
